FAERS Safety Report 9853441 (Version 1)
Quarter: 2014Q1

REPORT INFORMATION
  Report Type: Spontaneous
  Country: US (occurrence: US)
  Receive Date: 20140129
  Receipt Date: 20140129
  Transmission Date: 20141002
  Serious: Yes (Death, Hospitalization)
  Sender: FDA-Public Use
  Company Number: US-GLAXOSMITHKLINE-A1057691A

PATIENT
  Age: 86 Year
  Sex: Male

DRUGS (4)
  1. ADVAIR HFA [Suspect]
     Indication: ASTHMA
     Dosage: 1PUFF TWICE PER DAY
     Route: 055
     Dates: start: 2000, end: 20131203
  2. VENTOLIN HFA [Suspect]
     Indication: ASTHMA
     Dosage: 90MCG AS REQUIRED
     Route: 055
     Dates: start: 2000, end: 20131203
  3. ANTI-CHOLESTEROL MEDICATION [Concomitant]
  4. COUMADIN [Concomitant]

REACTIONS (1)
  - Cerebrovascular accident [Fatal]
